FAERS Safety Report 16964237 (Version 1)
Quarter: 2019Q4

REPORT INFORMATION
  Report Type: Spontaneous
  Country: US (occurrence: US)
  Receive Date: 20190909
  Receipt Date: 20190909
  Transmission Date: 20200122
  Serious: No
  Sender: FDA-Public Use
  Company Number: None

PATIENT
  Age: 57 Year
  Sex: Male

DRUGS (2)
  1. TADALAFIL  20MG TAB [Suspect]
     Active Substance: TADALAFIL
     Route: 048
     Dates: start: 201804
  2. NADALOL [Concomitant]

REACTIONS (2)
  - Product substitution issue [None]
  - Alopecia [None]

NARRATIVE: CASE EVENT DATE: 20190909
